FAERS Safety Report 5759112-2 (Version None)
Quarter: 2008Q2

REPORT INFORMATION
  Report Type: 
  Country: None (occurrence: None)
  Receive Date: 20080604
  Receipt Date: 20080523
  Transmission Date: 20081010
  Serious: Yes (Death, Hospitalization, Other)
  Sender: FDA-Public Use
  Company Number: AR-PFIZER INC-2006107013

PATIENT
  Sex: Male
  Weight: 96 kg

DRUGS (15)
  1. SU-011,248 [Suspect]
     Indication: METASTATIC RENAL CELL CARCINOMA
     Route: 048
     Dates: start: 20060516, end: 20060829
  2. SU-011,248 [Suspect]
     Indication: RENAL CANCER
  3. LOSARTAN POTASSIUM [Concomitant]
     Route: 048
     Dates: start: 19980101, end: 20060829
  4. ZOLEDRONIC ACID [Concomitant]
     Route: 042
     Dates: start: 20060317, end: 20060515
  5. METHYLPREDNISOLONE [Concomitant]
     Route: 048
     Dates: start: 20060608, end: 20060829
  6. NYSTATIN [Concomitant]
     Route: 048
     Dates: start: 20060612, end: 20060829
  7. ENSURE [Concomitant]
     Route: 048
  8. PLATSULA [Concomitant]
     Route: 061
     Dates: start: 20060726, end: 20060806
  9. VITAMIN A [Concomitant]
     Route: 061
     Dates: start: 20060725, end: 20060806
  10. LIDOCAINE [Concomitant]
     Route: 061
     Dates: start: 20060725, end: 20060806
  11. FUROSEMIDE [Concomitant]
     Route: 042
     Dates: start: 20060903, end: 20060905
  12. DIPHENYLHYDANTOIN SODIUM [Concomitant]
     Route: 042
     Dates: start: 20060830, end: 20060901
  13. AMPICILLIN [Concomitant]
     Route: 042
     Dates: start: 20060905, end: 20060905
  14. SULBACTAM [Concomitant]
     Route: 042
     Dates: start: 20060903, end: 20060905
  15. MANNITOL [Concomitant]
     Route: 042
     Dates: start: 20060901, end: 20060901

REACTIONS (3)
  - DISEASE PROGRESSION [None]
  - HYPOGLYCAEMIA [None]
  - METASTATIC RENAL CELL CARCINOMA [None]
